APPROVED DRUG PRODUCT: EVISTA
Active Ingredient: RALOXIFENE HYDROCHLORIDE
Strength: 60MG
Dosage Form/Route: TABLET;ORAL
Application: N020815 | Product #001 | TE Code: AB
Applicant: ELI LILLY AND CO
Approved: Dec 9, 1997 | RLD: Yes | RS: Yes | Type: RX